FAERS Safety Report 11322458 (Version 3)
Quarter: 2015Q4

REPORT INFORMATION
  Report Type: Report from Study
  Country: US (occurrence: US)
  Receive Date: 20150730
  Receipt Date: 20151103
  Transmission Date: 20160304
  Serious: No
  Sender: FDA-Public Use
  Company Number: US-AMGEN-USASP2015075042

PATIENT
  Age: 35 Year
  Sex: Female

DRUGS (1)
  1. ENBREL [Suspect]
     Active Substance: ETANERCEPT
     Indication: ANKYLOSING SPONDYLITIS
     Dosage: 50 MG, QWK
     Route: 065
     Dates: start: 20150625, end: 2015

REACTIONS (8)
  - Erythema [Unknown]
  - Injection site mass [Unknown]
  - Injection site bruising [Unknown]
  - Pruritus [Unknown]
  - No therapeutic response [Unknown]
  - Injection site pain [Unknown]
  - Adverse reaction [Unknown]
  - Contusion [Recovered/Resolved]

NARRATIVE: CASE EVENT DATE: 2015
